FAERS Safety Report 25135745 (Version 1)
Quarter: 2025Q1

REPORT INFORMATION
  Report Type: Spontaneous
  Country: CN (occurrence: CN)
  Receive Date: 20250328
  Receipt Date: 20250328
  Transmission Date: 20250408
  Serious: Yes (Hospitalization)
  Sender: PFIZER
  Company Number: CN-PFIZER INC-PV202500035976

PATIENT
  Age: 30 Year
  Sex: Male

DRUGS (8)
  1. XYNTHA [Suspect]
     Active Substance: MOROCTOCOG ALFA
     Indication: Factor VIII deficiency
     Route: 042
     Dates: start: 20231229
  2. XYNTHA [Suspect]
     Active Substance: MOROCTOCOG ALFA
     Route: 042
     Dates: start: 20240201
  3. XYNTHA [Suspect]
     Active Substance: MOROCTOCOG ALFA
     Route: 040
     Dates: start: 20240703
  4. XYNTHA [Suspect]
     Active Substance: MOROCTOCOG ALFA
     Route: 040
     Dates: start: 20241106
  5. XYNTHA [Suspect]
     Active Substance: MOROCTOCOG ALFA
     Route: 042
     Dates: start: 20250219
  6. XYNTHA [Suspect]
     Active Substance: MOROCTOCOG ALFA
     Route: 042
     Dates: start: 20250220
  7. XYNTHA [Suspect]
     Active Substance: MOROCTOCOG ALFA
     Route: 042
     Dates: start: 20250221
  8. XYNTHA [Suspect]
     Active Substance: MOROCTOCOG ALFA
     Route: 042
     Dates: start: 20250226

REACTIONS (1)
  - Neoplasm [Unknown]

NARRATIVE: CASE EVENT DATE: 20240101
